FAERS Safety Report 11117492 (Version 1)
Quarter: 2015Q2

REPORT INFORMATION
  Report Type: Report from Study
  Country: ES (occurrence: ES)
  Receive Date: 20150516
  Receipt Date: 20150516
  Transmission Date: 20150821
  Serious: Yes (Hospitalization)
  Sender: FDA-Public Use
  Company Number: PHHY2015ES053913

PATIENT
  Age: 39 Year
  Sex: Female

DRUGS (2)
  1. LIORESAL [Concomitant]
     Active Substance: BACLOFEN
     Indication: PRODUCT USED FOR UNKNOWN INDICATION
     Route: 065
  2. GILENYA [Suspect]
     Active Substance: FINGOLIMOD HYDROCHLORIDE
     Indication: MULTIPLE SCLEROSIS
     Dosage: 0.5 MG, UNK
     Route: 048
     Dates: start: 201407

REACTIONS (9)
  - Pyrexia [Unknown]
  - Movement disorder [Unknown]
  - Urinary incontinence [Unknown]
  - Vertigo [Unknown]
  - Inflammation [Unknown]
  - Abasia [Unknown]
  - Hypoglycaemia [Unknown]
  - Fatigue [Unknown]
  - Depression [Unknown]
